FAERS Safety Report 5091538-5 (Version None)
Quarter: 2006Q3

REPORT INFORMATION
  Report Type: 
  Country: None (occurrence: None)
  Receive Date: 20060824
  Receipt Date: 20060810
  Transmission Date: 20061208
  Serious: Yes (Other)
  Sender: FDA-Public Use
  Company Number: 9482

PATIENT
  Age: 62 Year
  Sex: Female
  Weight: 56.6996 kg

DRUGS (16)
  1. SEPTOCAINE [Suspect]
     Indication: LOCAL ANAESTHESIA
     Dosage: 1.7 ML, INJECTED
  2. METOPROLOL TARTRATE [Concomitant]
  3. DIOVAN HCT [Concomitant]
  4. PRAVACHOL [Concomitant]
  5. FISH OIL [Concomitant]
  6. AVANDIA [Concomitant]
  7. MICRONASE [Concomitant]
  8. ASPIRIN [Concomitant]
  9. METFORMIN HCL [Concomitant]
  10. ANALPRAM HC CREAM [Concomitant]
  11. ASCORBIC ACID [Concomitant]
  12. VITAMIN E [Concomitant]
  13. VITAMIN K [Concomitant]
  14. CLOTRIMAZOLE [Concomitant]
  15. BETHAMETHASONE DIPROPIONATE [Concomitant]
  16. PRANDIN [Concomitant]

REACTIONS (4)
  - DYSGEUSIA [None]
  - FEELING COLD [None]
  - HYPOAESTHESIA ORAL [None]
  - PARAESTHESIA [None]
